FAERS Safety Report 5385299-X (Version None)
Quarter: 2007Q3

REPORT INFORMATION
  Report Type: 
  Country: None (occurrence: None)
  Receive Date: 20070712
  Receipt Date: 20070705
  Transmission Date: 20080115
  Serious: Yes (Hospitalization)
  Sender: FDA-Public Use
  Company Number: AT-JNJFOC-20070700630

PATIENT
  Age: 42 Year
  Sex: Female
  Weight: 71 kg

DRUGS (3)
  1. REMICADE [Suspect]
     Indication: CROHN'S DISEASE
     Dosage: PATIENT RECEIVED 3 INFUSIONS OF INFLIXIMAB PRIOR TO THE EVENT.
     Route: 042
  2. IMUREK [Concomitant]
     Indication: CROHN'S DISEASE
     Route: 048
  3. CODIDOL [Concomitant]
     Indication: CROHN'S DISEASE

REACTIONS (1)
  - CLUSTER HEADACHE [None]
